FAERS Safety Report 16483227 (Version 1)
Quarter: 2019Q2

REPORT INFORMATION
  Report Type: Spontaneous
  Country: US (occurrence: US)
  Receive Date: 20190516
  Receipt Date: 20190516
  Transmission Date: 20190711
  Serious: No
  Sender: FDA-Public Use
  Company Number: None

PATIENT
  Sex: Female

DRUGS (1)
  1. REPATHA [Suspect]
     Active Substance: EVOLOCUMAB
     Indication: HYPERLIPIDAEMIA
     Route: 058
     Dates: start: 201812

REACTIONS (5)
  - Nasal inflammation [None]
  - Nasopharyngitis [None]
  - Dyspnoea [None]
  - Pulmonary congestion [None]
  - Nasal crusting [None]
